FAERS Safety Report 7073944-2 (Version None)
Quarter: 2010Q4

REPORT INFORMATION
  Report Type: 
  Country: None (occurrence: None)
  Receive Date: 20101029
  Receipt Date: 20101011
  Transmission Date: 20110411
  Serious: Yes (Other)
  Sender: FDA-Public Use
  Company Number: PHHY2010JP32851

PATIENT
  Age: 15 Year
  Sex: Female

DRUGS (4)
  1. GLEEVEC [Suspect]
     Indication: ACUTE LYMPHOCYTIC LEUKAEMIA
     Dosage: 800 MG, DAILY
     Route: 048
  2. GLEEVEC [Suspect]
     Dosage: 300 OR 400 MG/DAY
     Route: 048
  3. GLEEVEC [Suspect]
     Dosage: 800 MG/DAY
     Route: 048
  4. GLEEVEC [Suspect]
     Dosage: 400 MG/DAY

REACTIONS (7)
  - BONE MARROW TRANSPLANT [None]
  - CYTOMEGALOVIRUS TEST POSITIVE [None]
  - GENE MUTATION IDENTIFICATION TEST POSITIVE [None]
  - LEUKAEMIA RECURRENT [None]
  - NAUSEA [None]
  - THERAPY RESPONDER [None]
  - VOMITING [None]
